FAERS Safety Report 8213059-0 (Version None)
Quarter: 2012Q1

REPORT INFORMATION
  Report Type: 
  Country: None (occurrence: None)
  Receive Date: 20120315
  Receipt Date: 20120309
  Transmission Date: 20120608
  Serious: Yes (Other)
  Sender: FDA-Public Use
  Company Number: US-BAYER-2012-025077

PATIENT
  Sex: Female

DRUGS (3)
  1. YASMIN [Suspect]
     Route: 048
  2. YAZ [Suspect]
     Dosage: UNK
     Route: 048
     Dates: start: 20100701
  3. CYMBALTA [Concomitant]

REACTIONS (3)
  - CHEST PAIN [None]
  - DYSPNOEA [None]
  - PULMONARY EMBOLISM [None]
